FAERS Safety Report 8319212-X (Version None)
Quarter: 2012Q2

REPORT INFORMATION
  Report Type: 
  Country: None (occurrence: None)
  Receive Date: 20120427
  Receipt Date: 20120314
  Transmission Date: 20120825
  Serious: Yes (Hospitalization)
  Sender: FDA-Public Use
  Company Number: FR-MERCK-1204USA03721

PATIENT
  Age: 48 Year
  Sex: Female

DRUGS (12)
  1. ARIXTRA [Concomitant]
     Route: 065
  2. ZOLPIDEM TARTRATE [Concomitant]
     Route: 065
  3. NOROXIN [Suspect]
     Indication: URINARY TRACT INFECTION
     Route: 048
     Dates: start: 20110901, end: 20111001
  4. BISOPROLOL FUMARATE [Concomitant]
     Route: 065
  5. MOTILIUM [Concomitant]
     Route: 065
  6. DITROPAN [Concomitant]
     Route: 065
  7. XANAX [Concomitant]
     Route: 065
  8. ACETAMINOPHEN [Concomitant]
     Route: 065
  9. NEXIUM [Concomitant]
     Route: 065
  10. DURAGESIC-100 [Concomitant]
     Route: 065
  11. RAMIPRIL [Concomitant]
     Route: 065
  12. KEPPRA [Concomitant]
     Route: 065

REACTIONS (1)
  - CLOSTRIDIUM DIFFICILE COLITIS [None]
